FAERS Safety Report 8550730-5 (Version None)
Quarter: 2012Q3

REPORT INFORMATION
  Report Type: 
  Country: None (occurrence: None)
  Receive Date: 20120730
  Receipt Date: 20120724
  Transmission Date: 20120928
  Serious: Yes (Other)
  Sender: FDA-Public Use
  Company Number: US-PFIZER INC-2012179341

PATIENT
  Sex: Female
  Weight: 78.458 kg

DRUGS (1)
  1. PREMPRO [Suspect]
     Dosage: 0.625 MG, 1X/DAY
     Route: 048
     Dates: end: 20110801

REACTIONS (8)
  - ACTIVITIES OF DAILY LIVING IMPAIRED [None]
  - NAUSEA [None]
  - FEELING HOT [None]
  - HEADACHE [None]
  - BEDRIDDEN [None]
  - PRESYNCOPE [None]
  - MALAISE [None]
  - FEELING ABNORMAL [None]
